FAERS Safety Report 8340929-5 (Version None)
Quarter: 2012Q2

REPORT INFORMATION
  Report Type: 
  Country: None (occurrence: None)
  Receive Date: 20120507
  Receipt Date: 20120424
  Transmission Date: 20120825
  Serious: Yes (Other)
  Sender: FDA-Public Use
  Company Number: IT-ALLERGAN-1201894US

PATIENT
  Sex: Male

DRUGS (1)
  1. DIPIVEFRIN HCL [Suspect]
     Indication: EYE DISORDER
     Route: 047

REACTIONS (5)
  - DIZZINESS [None]
  - TOXIC EPIDERMAL NECROLYSIS [None]
  - PYREXIA [None]
  - NAUSEA [None]
  - MYALGIA [None]
